APPROVED DRUG PRODUCT: HYDRALAZINE HYDROCHLORIDE
Active Ingredient: HYDRALAZINE HYDROCHLORIDE
Strength: 10MG
Dosage Form/Route: TABLET;ORAL
Application: A089359 | Product #001
Applicant: TP ANDA HOLDINGS LLC
Approved: Jul 25, 1986 | RLD: No | RS: No | Type: DISCN